FAERS Safety Report 18879393 (Version 1)
Quarter: 2021Q1

REPORT INFORMATION
  Report Type: Spontaneous
  Country: US (occurrence: US)
  Receive Date: 20210211
  Receipt Date: 20210211
  Transmission Date: 20210420
  Serious: No
  Sender: FDA-Public Use
  Company Number: US-PFIZER INC-2021141794

PATIENT

DRUGS (2)
  1. BINIMETINIB [Suspect]
     Active Substance: BINIMETINIB
     Dosage: UNK
  2. ENCORAFENIB [Suspect]
     Active Substance: ENCORAFENIB
     Dosage: UNK

REACTIONS (2)
  - Normocytic anaemia [Unknown]
  - Condition aggravated [Unknown]
